FAERS Safety Report 4320792-X (Version None)
Quarter: 2004Q1

REPORT INFORMATION
  Report Type: 
  Country: None (occurrence: None)
  Receive Date: 20040315
  Receipt Date: 20030606
  Transmission Date: 20041129
  Serious: Yes (Other)
  Sender: FDA-Public Use
  Company Number: PHEH2003US04506

PATIENT
  Age: 37 Year
  Sex: Female
  Weight: 59 kg

DRUGS (1)
  1. TRILEPTAL [Suspect]
     Indication: CONVULSION
     Dosage: ORAL
     Route: 048
     Dates: start: 20010101

REACTIONS (3)
  - ASTHENIA [None]
  - CONVULSION [None]
  - DIFFICULTY IN WALKING [None]
